FAERS Safety Report 21356053 (Version 1)
Quarter: 2022Q3

REPORT INFORMATION
  Report Type: Report from Study
  Country: US (occurrence: US)
  Receive Date: 20220920
  Receipt Date: 20220920
  Transmission Date: 20221026
  Serious: Yes (Other)
  Sender: FDA-Public Use
  Company Number: US-BRISTOL-MYERS SQUIBB COMPANY-2022-041794

PATIENT
  Age: 76 Year
  Sex: Male
  Weight: 64.86 kg

DRUGS (4)
  1. REVLIMID [Suspect]
     Active Substance: LENALIDOMIDE
     Indication: Plasma cell myeloma
     Route: 048
  2. REVLIMID [Suspect]
     Active Substance: LENALIDOMIDE
     Dosage: DAILY 14 OF 21 DAYS
     Route: 048
     Dates: start: 20220329
  3. POMALYST [Suspect]
     Active Substance: POMALIDOMIDE
     Indication: Product used for unknown indication
     Route: 065
  4. VELCADE [Suspect]
     Active Substance: BORTEZOMIB
     Indication: Product used for unknown indication
     Route: 065

REACTIONS (11)
  - Urticaria [Unknown]
  - Dermatitis contact [Unknown]
  - Diarrhoea [Unknown]
  - Hypotension [Unknown]
  - Illness [Unknown]
  - Fatigue [Unknown]
  - Constipation [Unknown]
  - Rash [Unknown]
  - Hypersensitivity [Unknown]
  - Off label use [Unknown]
  - Loss of consciousness [Unknown]
